FAERS Safety Report 17984857 (Version 1)
Quarter: 2020Q3

REPORT INFORMATION
  Report Type: Spontaneous
  Country: US (occurrence: US)
  Receive Date: 20200706
  Receipt Date: 20200706
  Transmission Date: 20201103
  Serious: No
  Sender: FDA-Public Use
  Company Number: NVSC2020US178490

PATIENT
  Sex: Female
  Weight: 52.16 kg

DRUGS (4)
  1. ERYTHROMYCIN. [Concomitant]
     Active Substance: ERYTHROMYCIN
     Indication: PRODUCT USED FOR UNKNOWN INDICATION
     Dosage: (TWO TO THREE TIMES A WEEK)
     Route: 065
  2. XALATAN [Suspect]
     Active Substance: LATANOPROST
     Indication: PRODUCT USED FOR UNKNOWN INDICATION
     Dosage: UNK
     Route: 065
     Dates: end: 2016
  3. TOVIAZ [Concomitant]
     Active Substance: FESOTERODINE FUMARATE
     Indication: PRODUCT USED FOR UNKNOWN INDICATION
     Dosage: UNK
     Route: 065
  4. LATANOPROST. [Suspect]
     Active Substance: LATANOPROST
     Indication: PRODUCT USED FOR UNKNOWN INDICATION
     Dosage: 1 GTT (ONE DROP IN EACH EYE AT BEDTIME)
     Route: 065

REACTIONS (8)
  - Dyspnoea [Unknown]
  - Headache [Unknown]
  - Urticaria [Unknown]
  - Dizziness [Unknown]
  - Eye pain [Unknown]
  - Eye pain [Unknown]
  - Dyskinesia [Unknown]
  - Hypersensitivity [Unknown]

NARRATIVE: CASE EVENT DATE: 1967
